FAERS Safety Report 15341516 (Version 2)
Quarter: 2018Q3

REPORT INFORMATION
  Report Type: Report from Study
  Country: CO (occurrence: CO)
  Receive Date: 20180901
  Receipt Date: 20180907
  Transmission Date: 20181010
  Serious: Yes (Other)
  Sender: FDA-Public Use
  Company Number: CO-UCBSA-2018038567

PATIENT
  Age: 54 Year
  Sex: Male
  Weight: 84 kg

DRUGS (8)
  1. HALOPERIDOL. [Concomitant]
     Active Substance: HALOPERIDOL
     Indication: ANALGESIC THERAPY
     Dosage: 10 MG, 2X/DAY (BID)
     Route: 048
     Dates: start: 20140101
  2. COLCHICINE. [Concomitant]
     Active Substance: COLCHICINE
     Indication: ANKYLOSING SPONDYLITIS
     Dosage: 0.5 MG, ONCE DAILY (QD)
     Route: 048
     Dates: start: 20140101
  3. TRAMADOL AND ACETAMINOPHEN [Concomitant]
     Active Substance: ACETAMINOPHEN\TRAMADOL HYDROCHLORIDE
     Indication: ANALGESIC THERAPY
     Dosage: UNK, 2X/DAY (BID)
     Route: 048
  4. ISONIAZID. [Concomitant]
     Active Substance: ISONIAZID
     Indication: ANTIBIOTIC PROPHYLAXIS
     Dosage: 300 MG, ONCE DAILY (QD)
     Route: 048
     Dates: start: 20180702
  5. PYRIDOXINE [Concomitant]
     Active Substance: PYRIDOXINE
     Indication: ANTIBIOTIC PROPHYLAXIS
     Dosage: 50 MG, ONCE DAILY (QD)
     Route: 048
     Dates: start: 20180601
  6. CERTOLIZUMAB PEGOL [Suspect]
     Active Substance: CERTOLIZUMAB PEGOL
     Indication: ANKYLOSING SPONDYLITIS
     Dosage: 800 MG, UNK
     Route: 058
     Dates: start: 20180815, end: 20180815
  7. METHOTREXATE. [Concomitant]
     Active Substance: METHOTREXATE
     Indication: ANKYLOSING SPONDYLITIS
     Dosage: 25 MG, EV 8 DAYS
     Route: 048
     Dates: start: 20180501
  8. GABAPENTIN. [Concomitant]
     Active Substance: GABAPENTIN
     Indication: ANKYLOSING SPONDYLITIS
     Dosage: 300 MG, ONCE DAILY (QD)
     Route: 048
     Dates: start: 20180301

REACTIONS (4)
  - Asthenia [Recovering/Resolving]
  - Somnolence [Recovering/Resolving]
  - Overdose [Unknown]
  - Fatigue [Recovering/Resolving]

NARRATIVE: CASE EVENT DATE: 201808
